FAERS Safety Report 8471505-1 (Version None)
Quarter: 2012Q2

REPORT INFORMATION
  Report Type: 
  Country: None (occurrence: None)
  Receive Date: 20120323
  Receipt Date: 20110929
  Transmission Date: 20120825
  Serious: Yes (Other)
  Sender: FDA-Public Use
  Company Number: 163-21880-11100399

PATIENT
  Age: 76 Year
  Sex: Male

DRUGS (3)
  1. REVLIMID [Suspect]
     Indication: MULTIPLE MYELOMA
     Dosage: 30 MG, 2 IN 1 D, PO; 20MG-15MG, PO; 10 MG, 1 IN 1 D, PO;
     Route: 048
     Dates: start: 20100301
  2. REVLIMID [Suspect]
     Indication: MULTIPLE MYELOMA
     Dosage: 30 MG, 2 IN 1 D, PO; 20MG-15MG, PO; 10 MG, 1 IN 1 D, PO;
     Route: 048
     Dates: start: 20110401, end: 20110101
  3. REVLIMID [Suspect]
     Indication: MULTIPLE MYELOMA
     Dosage: 30 MG, 2 IN 1 D, PO; 20MG-15MG, PO; 10 MG, 1 IN 1 D, PO;
     Route: 048
     Dates: start: 20100201

REACTIONS (1)
  - BONE MARROW FAILURE [None]
